FAERS Safety Report 6183050-7 (Version None)
Quarter: 2009Q2

REPORT INFORMATION
  Report Type: 
  Country: None (occurrence: None)
  Receive Date: 20090507
  Receipt Date: 20090423
  Transmission Date: 20091009
  Serious: Yes (Hospitalization)
  Sender: FDA-Public Use
  Company Number: US-ROCHE-471463

PATIENT
  Sex: Female
  Weight: 98.4 kg

DRUGS (11)
  1. PEGASYS [Suspect]
     Indication: HEPATITIS C
     Dosage: STRENGTH REPORTED AS 180MCG/0.5ML
     Route: 058
     Dates: start: 20060907, end: 20061117
  2. PEGASYS [Suspect]
     Dosage: FORM: PRE FILLED SYRINGE,
     Route: 058
     Dates: start: 20090313, end: 20090421
  3. RIBAVIRIN [Suspect]
     Indication: HEPATITIS C
     Route: 048
     Dates: start: 20060907, end: 20061012
  4. RIBAVIRIN [Suspect]
     Route: 048
     Dates: start: 20061013, end: 20061117
  5. RIBAVIRIN [Suspect]
     Dosage: DIVIDED DOSES,
     Route: 048
     Dates: start: 20090313, end: 20090421
  6. ASPIRIN [Concomitant]
     Dates: start: 19900101
  7. PLAVIX [Concomitant]
     Indication: CEREBROVASCULAR ACCIDENT PROPHYLAXIS
     Dosage: TAKING FOR MANY YEARS
  8. LASIX [Concomitant]
     Dosage: TAKEN FOR SIX YEARS
  9. PRAVASTATIN [Concomitant]
     Dosage: TAKEN FOR TWO YEARS
  10. K DUR [Concomitant]
  11. DARVOCET [Concomitant]
     Indication: PAIN
     Dosage: TAKEN AS NEEDED

REACTIONS (19)
  - ANAEMIA [None]
  - ASTHENIA [None]
  - BONE PAIN [None]
  - CONSTIPATION [None]
  - CONTUSION [None]
  - DECREASED APPETITE [None]
  - DIZZINESS [None]
  - DYSPNOEA [None]
  - EYE DISORDER [None]
  - FATIGUE [None]
  - FEELING COLD [None]
  - HEADACHE [None]
  - INSOMNIA [None]
  - JOINT SWELLING [None]
  - MUSCULOSKELETAL PAIN [None]
  - NAUSEA [None]
  - PNEUMONIA [None]
  - RASH PRURITIC [None]
  - SYNCOPE [None]
